FAERS Safety Report 18920767 (Version 3)
Quarter: 2021Q2

REPORT INFORMATION
  Report Type: Spontaneous
  Country: US (occurrence: US)
  Receive Date: 20210222
  Receipt Date: 20210429
  Transmission Date: 20210717
  Serious: Yes (Other)
  Sender: FDA-Public Use
  Company Number: US-TEVA-2021-US-1877465

PATIENT
  Sex: Female

DRUGS (3)
  1. AUSTEDO [Suspect]
     Active Substance: DEUTETRABENAZINE
     Indication: TREMOR
     Dosage: 24 MILLIGRAM DAILY;
     Dates: start: 202011
  2. AUSTEDO [Suspect]
     Active Substance: DEUTETRABENAZINE
     Indication: DYSKINESIA
  3. AUSTEDO [Suspect]
     Active Substance: DEUTETRABENAZINE
     Indication: TARDIVE DYSKINESIA
     Route: 065
     Dates: start: 20201022

REACTIONS (11)
  - Diabetes mellitus [Unknown]
  - Temporomandibular joint syndrome [Unknown]
  - Chondropathy [Unknown]
  - Therapeutic product effect decreased [Unknown]
  - Jaw disorder [Unknown]
  - Dyskinesia [Unknown]
  - Insomnia [Unknown]
  - Anxiety [Unknown]
  - Trismus [Unknown]
  - Hepatic enzyme increased [Unknown]
  - Weight increased [Unknown]

NARRATIVE: CASE EVENT DATE: 2020
